FAERS Safety Report 4642124-X (Version None)
Quarter: 2005Q2

REPORT INFORMATION
  Report Type: 
  Country: None (occurrence: None)
  Receive Date: 20050421
  Receipt Date: 20050421
  Transmission Date: 20051028
  Serious: Yes (Hospitalization)
  Sender: FDA-Public Use
  Company Number: None

PATIENT
  Age: 63 Year
  Sex: Female
  Weight: 109.0901 kg

DRUGS (6)
  1. BEVACIZUMAB [Suspect]
     Dosage: 5MG/KG IV BOLUS
     Route: 042
     Dates: start: 20050405
  2. OXALIPLATIN  85 MG/M2 IV BOLUS [Suspect]
     Dosage: 85 MG/M2 IV BOLUS
     Route: 042
     Dates: start: 20050405
  3. LEUCOVORIN CA.  400MG/M2   IV BOLUS [Suspect]
     Indication: COLON CANCER METASTATIC
     Dosage: 400MG/M2   IV BOLUS
     Route: 040
     Dates: start: 20050405
  4. FLUOROURACIL  1200 MG/M2  C.I. [Suspect]
     Indication: COLON CANCER METASTATIC
     Dosage: 1200 MG/M2  C.I.
     Dates: start: 20050405
  5. FLUOROURACIL 400 MG/M2  (INFUSE 10-15) [Suspect]
     Indication: COLON CANCER METASTATIC
     Dosage: 400 MG/M2  (INFUSE 10-15)
     Dates: start: 20050405
  6. ERLOTINIB 150 MG PO [Suspect]
     Indication: COLON CANCER METASTATIC
     Dosage: 150 MG PO
     Route: 048
     Dates: start: 20050412

REACTIONS (1)
  - FEBRILE NEUTROPENIA [None]
